FAERS Safety Report 7028416-8 (Version None)
Quarter: 2010Q4

REPORT INFORMATION
  Report Type: 
  Country: None (occurrence: None)
  Receive Date: 20101005
  Receipt Date: 20100930
  Transmission Date: 20110411
  Serious: Yes (Hospitalization)
  Sender: FDA-Public Use
  Company Number: ES-PFIZER INC-2010123972

PATIENT
  Age: 80 Year
  Sex: Female

DRUGS (2)
  1. ALDACTONE [Suspect]
     Indication: HYPERTENSION
     Dosage: 25 MG, 1X/DAY
     Route: 048
     Dates: start: 20090205, end: 20100223
  2. LOBIVON [Interacting]
     Indication: DYSPNOEA EXERTIONAL
     Dosage: 5 MG, 1X/DAY
     Route: 048
     Dates: start: 20100204, end: 20100223

REACTIONS (4)
  - CHEST PAIN [None]
  - DRUG INTERACTION [None]
  - HYPERKALAEMIA [None]
  - SINUS ARREST [None]
